FAERS Safety Report 25008426 (Version 1)
Quarter: 2025Q1

REPORT INFORMATION
  Report Type: Spontaneous
  Country: US (occurrence: US)
  Receive Date: 20250225
  Receipt Date: 20250225
  Transmission Date: 20250409
  Serious: No
  Sender: BIOGEN
  Company Number: US-BIOGENIDEC-2013BI058343

PATIENT
  Age: 50 Year
  Sex: Male

DRUGS (8)
  1. TECFIDERA [Suspect]
     Active Substance: DIMETHYL FUMARATE
     Indication: Multiple sclerosis
     Route: 050
     Dates: start: 20130530
  2. TECFIDERA [Suspect]
     Active Substance: DIMETHYL FUMARATE
     Route: 050
     Dates: start: 20130610, end: 20130610
  3. GABAPENTIN [Concomitant]
     Active Substance: GABAPENTIN
     Route: 050
  4. BACLOFEN [Concomitant]
     Active Substance: BACLOFEN
     Route: 050
  5. NEXIUM [Concomitant]
     Active Substance: ESOMEPRAZOLE MAGNESIUM
     Route: 050
  6. CINNAMON [Concomitant]
     Active Substance: CINNAMON
     Route: 050
  7. COENZYME Q10 [Concomitant]
     Active Substance: DIETARY SUPPLEMENT\UBIDECARENONE
     Route: 050
  8. ALEVE [Concomitant]
     Active Substance: NAPROXEN SODIUM
     Route: 050

REACTIONS (3)
  - Flushing [Unknown]
  - Pruritus [Unknown]
  - Gastrointestinal disorder [Unknown]

NARRATIVE: CASE EVENT DATE: 20130530
